FAERS Safety Report 23315765 (Version 1)
Quarter: 2023Q4

REPORT INFORMATION
  Report Type: Other
  Country: US (occurrence: US)
  Receive Date: 20231219
  Receipt Date: 20231219
  Transmission Date: 20240110
  Serious: No
  Sender: FDA-Public Use
  Company Number: US-HLS-202301131

PATIENT
  Age: 34 Year
  Sex: Female

DRUGS (4)
  1. CLOZAPINE [Suspect]
     Active Substance: CLOZAPINE
     Indication: Schizophrenia
     Dosage: 400 MG PER DAY
     Route: 065
  2. PROPRANOLOL [Concomitant]
     Active Substance: PROPRANOLOL HYDROCHLORIDE
     Indication: Hyperhidrosis
     Dosage: 10MG BY MOUTH TWICE DAILY WAS ADDED AND TITRATED TO 10 MG BY MOUTH 3 TIMES DAILY
     Route: 065
  3. PROPRANOLOL [Concomitant]
     Active Substance: PROPRANOLOL HYDROCHLORIDE
     Indication: Tachycardia
     Dosage: 10MG BY MOUTH TWICE DAILY WAS ADDED AND TITRATED TO 10 MG BY MOUTH 3 TIMES DAILY
     Route: 065
  4. DILTIAZEM [Concomitant]
     Active Substance: DILTIAZEM
     Indication: Hyperhidrosis
     Dosage: 120MG BY MOUTH AT BEDTIME WAS INITIATED AND TITRATED TO 180 MG/DAY,
     Route: 065

REACTIONS (4)
  - Hyperhidrosis [Recovered/Resolved]
  - Salivary hypersecretion [Unknown]
  - Constipation [Unknown]
  - Tachycardia [Unknown]
